FAERS Safety Report 23002480 (Version 2)
Quarter: 2023Q4

REPORT INFORMATION
  Report Type: Spontaneous
  Country: ES (occurrence: ES)
  Receive Date: 20230928
  Receipt Date: 20231115
  Transmission Date: 20240110
  Serious: Yes (Hospitalization, Other)
  Sender: FDA-Public Use
  Company Number: ES-PFIZER INC-PV202300155483

PATIENT
  Sex: Male
  Weight: 73 kg

DRUGS (21)
  1. CARBOPLATIN [Suspect]
     Active Substance: CARBOPLATIN
     Indication: Non-small cell lung cancer metastatic
     Dosage: 719 MG
     Route: 042
     Dates: start: 20230817, end: 20230817
  2. CARBOPLATIN [Suspect]
     Active Substance: CARBOPLATIN
     Dosage: 718.8 MG
     Route: 042
     Dates: start: 20230727, end: 20230727
  3. PACLITAXEL [Suspect]
     Active Substance: PACLITAXEL
     Indication: Non-small cell lung cancer metastatic
     Dosage: 368 MG
     Route: 042
     Dates: start: 20230727, end: 20230727
  4. PACLITAXEL [Suspect]
     Active Substance: PACLITAXEL
     Dosage: 368 MG
     Route: 042
     Dates: start: 20230817, end: 20230817
  5. ACETAMINOPHEN [Suspect]
     Active Substance: ACETAMINOPHEN
     Indication: Product used for unknown indication
     Dosage: 1 G, Q8H
  6. DOMVANALIMAB [Suspect]
     Active Substance: DOMVANALIMAB
     Indication: Non-small cell lung cancer metastatic
     Dosage: 1200 MG
     Route: 042
     Dates: start: 20230727, end: 20230727
  7. DOMVANALIMAB [Suspect]
     Active Substance: DOMVANALIMAB
     Dosage: 1200 MG
     Route: 042
     Dates: start: 20230817, end: 20230817
  8. ZIMBERELIMAB [Suspect]
     Active Substance: ZIMBERELIMAB
     Indication: Non-small cell lung cancer metastatic
     Dosage: 360 MG
     Route: 042
     Dates: start: 20230817, end: 20230817
  9. ZIMBERELIMAB [Suspect]
     Active Substance: ZIMBERELIMAB
     Dosage: 360 MG
     Route: 042
     Dates: start: 20230727, end: 20230727
  10. ALPRAZOLAM [Concomitant]
     Active Substance: ALPRAZOLAM
     Indication: Product used for unknown indication
     Dosage: 0.25 MG, Q8H
     Dates: start: 20230822
  11. FUROSEMIDE [Concomitant]
     Active Substance: FUROSEMIDE
     Indication: Product used for unknown indication
     Dosage: 40 MG, Q24 HOURS
  12. METAMIZOL [Concomitant]
     Active Substance: METAMIZOLE SODIUM
     Indication: Product used for unknown indication
     Dosage: UNK
     Dates: start: 20230810
  13. IBUPROFEN [Concomitant]
     Active Substance: IBUPROFEN
     Indication: Product used for unknown indication
     Dosage: UNK
     Dates: start: 20230501, end: 20230810
  14. TRAMADOL [Concomitant]
     Active Substance: TRAMADOL\TRAMADOL HYDROCHLORIDE
     Indication: Product used for unknown indication
     Dosage: UNK
     Dates: start: 20230810, end: 20230824
  15. VALIUM [Concomitant]
     Active Substance: DIAZEPAM
     Indication: Product used for unknown indication
     Dosage: UNK
     Dates: start: 20230822
  16. FUROSEMIDE [Concomitant]
     Active Substance: FUROSEMIDE
     Indication: Product used for unknown indication
     Dosage: UNK
     Dates: start: 20230822
  17. ENOXAPARIN SODIUM [Concomitant]
     Active Substance: ENOXAPARIN SODIUM
     Indication: Product used for unknown indication
     Dosage: 100 MG, 6 MONTHS
     Route: 058
     Dates: start: 20230822
  18. ESOMEPRAZOLE [Concomitant]
     Active Substance: ESOMEPRAZOLE
     Indication: Product used for unknown indication
     Dosage: 40 MG, Q24 HOURS
  19. ONDANSETRON [Concomitant]
     Active Substance: ONDANSETRON
     Indication: Product used for unknown indication
     Dosage: UNK
     Dates: start: 20230820
  20. METAMIZOLE MAGNESIUM [Concomitant]
     Active Substance: METAMIZOLE MAGNESIUM
     Indication: Product used for unknown indication
     Dosage: 2 G, Q8H
  21. METAMIZOLE MAGNESIUM [Concomitant]
     Active Substance: METAMIZOLE MAGNESIUM
     Dosage: 2 G, Q8H

REACTIONS (5)
  - Fatigue [Recovered/Resolved]
  - Vomiting [Recovered/Resolved]
  - Dysphagia [Recovered/Resolved]
  - Nausea [Recovering/Resolving]
  - Vomiting [Recovering/Resolving]

NARRATIVE: CASE EVENT DATE: 20230820
